FAERS Safety Report 5303635-7 (Version None)
Quarter: 2007Q2

REPORT INFORMATION
  Report Type: 
  Country: None (occurrence: None)
  Receive Date: 20070420
  Receipt Date: 20070412
  Transmission Date: 20071010
  Serious: Yes (Other)
  Sender: FDA-Public Use
  Company Number: FR-PFIZER INC-2007019214

PATIENT
  Sex: Female
  Weight: 65 kg

DRUGS (7)
  1. LYRICA [Suspect]
     Dates: start: 20061017, end: 20070102
  2. VASTAREL [Concomitant]
     Indication: VERTIGO
     Route: 048
  3. NOOTROPYL [Concomitant]
     Indication: VERTIGO
     Route: 048
     Dates: start: 20040615
  4. ACTONEL [Concomitant]
     Indication: OSTEOPOROSIS
     Route: 048
     Dates: start: 20020528
  5. OROCAL [Concomitant]
     Indication: OSTEOPOROSIS
     Route: 048
     Dates: start: 19981201
  6. ISOPTIN [Concomitant]
     Indication: HYPERTENSION
     Route: 048
     Dates: start: 20050628
  7. PIASCLEDINE [Concomitant]
     Indication: OSTEOARTHRITIS
     Route: 048
     Dates: start: 20040113

REACTIONS (1)
  - TOXIC SKIN ERUPTION [None]
